FAERS Safety Report 6095263-3 (Version None)
Quarter: 2009Q1

REPORT INFORMATION
  Report Type: 
  Country: None (occurrence: None)
  Receive Date: 20090227
  Receipt Date: 20080222
  Transmission Date: 20090719
  Serious: No
  Sender: FDA-Public Use
  Company Number: A0711369A

PATIENT
  Age: 29 Year
  Sex: Female

DRUGS (2)
  1. LAMICTAL [Suspect]
     Indication: MAJOR DEPRESSION
     Dosage: 25MG PER DAY
     Route: 048
     Dates: start: 20080218, end: 20080218
  2. ROZEREM [Concomitant]

REACTIONS (2)
  - FEELING HOT [None]
  - RASH GENERALISED [None]
